FAERS Safety Report 10667496 (Version 2)
Quarter: 2014Q4

REPORT INFORMATION
  Report Type: Report from Study
  Country: DE (occurrence: DE)
  Receive Date: 20141222
  Receipt Date: 20141222
  Transmission Date: 20150529
  Serious: Yes (Hospitalization)
  Sender: FDA-Public Use
  Company Number: PHHY2009DE16045

PATIENT
  Sex: Male
  Weight: 76 kg

DRUGS (5)
  1. STI571 [Suspect]
     Active Substance: IMATINIB MESYLATE
     Indication: CHRONIC MYELOID LEUKAEMIA
     Dosage: 400 MG, QD
     Route: 048
     Dates: start: 20060912, end: 20061012
  2. STI571 [Suspect]
     Active Substance: IMATINIB MESYLATE
     Dosage: 600 MG, QD
     Route: 048
     Dates: start: 20080122, end: 20081127
  3. STI571 [Suspect]
     Active Substance: IMATINIB MESYLATE
     Dosage: LESS THAN OR EQUAL TO 400 MG DAILY
     Route: 048
     Dates: start: 20061215, end: 20080121
  4. STI571 [Suspect]
     Active Substance: IMATINIB MESYLATE
     Dosage: 800 MG, QD
     Route: 048
  5. STI571 [Suspect]
     Active Substance: IMATINIB MESYLATE
     Dosage: MORE THAN 400 MG DAILY
     Route: 048
     Dates: start: 20061013, end: 20061023

REACTIONS (5)
  - Rash [Recovered/Resolved]
  - Liver disorder [Recovered/Resolved]
  - Pyrexia [Recovered/Resolved]
  - Drug intolerance [Recovered/Resolved]
  - Pruritus [Not Recovered/Not Resolved]

NARRATIVE: CASE EVENT DATE: 20061014
